FAERS Safety Report 18933655 (Version 1)
Quarter: 2021Q1

REPORT INFORMATION
  Report Type: Report from Study
  Country: IL (occurrence: IL)
  Receive Date: 20210224
  Receipt Date: 20210224
  Transmission Date: 20210420
  Serious: Yes (Death, Hospitalization)
  Sender: FDA-Public Use
  Company Number: IL-MYLANLABS-2021M1011686

PATIENT
  Age: 18 Day
  Sex: Male

DRUGS (8)
  1. VASOPRESSIN. [Suspect]
     Active Substance: VASOPRESSIN
     Indication: SEPTIC SHOCK
     Dosage: 0.05 U/KG/HOUR
     Route: 065
  2. EPINEPHRINE. [Suspect]
     Active Substance: EPINEPHRINE
     Indication: SEPTIC SHOCK
     Dosage: 0.42 MICROGRAM/KILOGRAM....
     Route: 065
  3. NOREPINEPHRINE. [Suspect]
     Active Substance: NOREPINEPHRINE
     Indication: SEPTIC SHOCK
     Dosage: 0.23 MICROGRAM/KILOGRAM
     Route: 065
  4. NITROUS OXIDE. [Suspect]
     Active Substance: NITROUS OXIDE
     Indication: SEPTIC SHOCK
  5. METHYLENE BLUE. [Suspect]
     Active Substance: METHYLENE BLUE
     Indication: SEPTIC SHOCK
     Dosage: 0.25 MILLIGRAM/KILOGRAM, QH...
  6. NITROUS OXIDE. [Suspect]
     Active Substance: NITROUS OXIDE
     Indication: VASOPLEGIA SYNDROME
     Route: 065
  7. DOPAMINE [Suspect]
     Active Substance: DOPAMINE HYDROCHLORIDE
     Indication: SEPTIC SHOCK
     Dosage: 10 MICROGRAM/KILOGRAM...
     Route: 065
  8. METHYLENE BLUE. [Suspect]
     Active Substance: METHYLENE BLUE
     Indication: VASOPLEGIA SYNDROME
     Dosage: 1 MILLIGRAM/KILOGRAM 10 MIN...

REACTIONS (1)
  - Drug ineffective [Fatal]
